FAERS Safety Report 10268772 (Version 1)
Quarter: 2014Q2

REPORT INFORMATION
  Report Type: Spontaneous
  Country: JP (occurrence: JP)
  Receive Date: 20140630
  Receipt Date: 20140630
  Transmission Date: 20141212
  Serious: Yes (Hospitalization)
  Sender: FDA-Public Use
  Company Number: PHHY2014JP079967

PATIENT
  Age: 75 Year
  Sex: Male

DRUGS (2)
  1. EQUA [Suspect]
     Indication: TYPE 2 DIABETES MELLITUS
     Dosage: 100 MG, DAILY
     Route: 048
     Dates: start: 20130624, end: 20140519
  2. VOLTAREN SR [Suspect]
     Dosage: 37.5 MG, DAILY
     Route: 048
     Dates: end: 20140520

REACTIONS (1)
  - Pemphigoid [Recovering/Resolving]
